FAERS Safety Report 5357586-2 (Version None)
Quarter: 2007Q2

REPORT INFORMATION
  Report Type: 
  Country: None (occurrence: None)
  Receive Date: 20070614
  Receipt Date: 20070607
  Transmission Date: 20071010
  Serious: Yes (Hospitalization)
  Sender: FDA-Public Use
  Company Number: US-ELI_LILLY_AND_COMPANY-US200706001589

PATIENT
  Age: 57 Year
  Sex: Female

DRUGS (2)
  1. HUMULIN 70/30 [Suspect]
     Indication: DIABETES MELLITUS
     Dosage: 30 U, EACH MORNING
  2. HUMULIN 70/30 [Suspect]
     Dosage: 10 U, EACH EVENING

REACTIONS (3)
  - FALL [None]
  - KNEE ARTHROPLASTY [None]
  - KNEE OPERATION [None]
